FAERS Safety Report 6023223-7 (Version None)
Quarter: 2008Q4

REPORT INFORMATION
  Report Type: 
  Country: None (occurrence: None)
  Receive Date: 20081230
  Receipt Date: 20081218
  Transmission Date: 20090506
  Serious: Yes (Other)
  Sender: FDA-Public Use
  Company Number: JP-ASTRAZENECA-2008AP09408

PATIENT
  Age: 73 Year
  Sex: Female

DRUGS (4)
  1. PROPOFOL [Suspect]
     Indication: INDUCTION AND MAINTENANCE OF ANAESTHESIA
     Dosage: DOSE UNKNOWN
     Route: 042
  2. REMIFENTANIL HYDROCHLORIDE [Concomitant]
     Indication: INDUCTION AND MAINTENANCE OF ANAESTHESIA
     Dosage: DOSE UNKNOWN
     Route: 042
  3. ROCURONIUM BROMIDE [Concomitant]
     Indication: INDUCTION AND MAINTENANCE OF ANAESTHESIA
     Dosage: DOSE UNKNOWN
     Route: 042
  4. FENTANYL-100 [Concomitant]
     Indication: MAINTENANCE OF ANAESTHESIA
     Dosage: DOSE UNKNOWN
     Route: 042

REACTIONS (2)
  - ALTERED STATE OF CONSCIOUSNESS [None]
  - CONVULSION [None]
